FAERS Safety Report 4878441-8 (Version None)
Quarter: 2005Q4

REPORT INFORMATION
  Report Type: 
  Country: None (occurrence: None)
  Receive Date: 20051209
  Receipt Date: 20050418
  Transmission Date: 20060501
  Serious: Yes (Other)
  Sender: FDA-Public Use
  Company Number: USA-2005-0019876

PATIENT
  Age: 28 Year
  Sex: Male
  Weight: 86.2 kg

DRUGS (3)
  1. OXYCONTIN [Suspect]
  2. MORPHINE SULFATE [Suspect]
  3. METHADONE HCL [Suspect]

REACTIONS (1)
  - DRUG ABUSER [None]
